FAERS Safety Report 15774632 (Version 1)
Quarter: 2018Q4

REPORT INFORMATION
  Report Type: Spontaneous
  Country: GB (occurrence: GB)
  Receive Date: 20181230
  Receipt Date: 20181230
  Transmission Date: 20190205
  Serious: Yes (Other)
  Sender: FDA-Public Use
  Company Number: GB-TEVA-2018-GB-993241

PATIENT
  Age: 57 Year
  Sex: Female

DRUGS (7)
  1. CODEINE PHOSPHATE [Concomitant]
     Active Substance: CODEINE PHOSPHATE
     Dosage: 1 TO 2 TABLETS EVERY FOUR HOURS
     Dates: start: 20171011
  2. NAPROXEN. [Suspect]
     Active Substance: NAPROXEN
     Dosage: 1000 MILLIGRAM DAILY; WITH FOOD.
     Route: 065
     Dates: start: 20181129
  3. OMEPRAZOLE. [Concomitant]
     Active Substance: OMEPRAZOLE
     Dosage: 2 DOSAGE FORMS DAILY;
     Dates: start: 20180202
  4. HYLO-TEAR [Concomitant]
     Dosage: USE AS DIRECTED.
     Dates: start: 20180920
  5. AVAMYS [Concomitant]
     Active Substance: FLUTICASONE FUROATE
     Dosage: 1 OR 2 PUFFS EACH NOSTRIL
     Route: 045
     Dates: start: 20180202, end: 20180906
  6. FLUOXETINE [Concomitant]
     Active Substance: FLUOXETINE HYDROCHLORIDE
     Dosage: 3 DOSAGE FORMS DAILY;
     Dates: start: 20180508, end: 20180906
  7. PREMARIN [Concomitant]
     Active Substance: ESTROGENS, CONJUGATED
     Dosage: 1 DOSAGE FORMS DAILY;
     Dates: start: 20170616

REACTIONS (2)
  - Gastritis [Recovering/Resolving]
  - Bronchial hyperreactivity [Recovering/Resolving]

NARRATIVE: CASE EVENT DATE: 20181203
